FAERS Safety Report 14328366 (Version 1)
Quarter: 2017Q4

REPORT INFORMATION
  Report Type: Other
  Country: US (occurrence: US)
  Receive Date: 20171227
  Receipt Date: 20171227
  Transmission Date: 20180321
  Serious: Yes (Other)
  Sender: FDA-Public Use
  Company Number: US-ACORDA-ACO_145265_2017

PATIENT
  Age: 54 Year
  Sex: Female

DRUGS (1)
  1. AMPYRA [Suspect]
     Active Substance: DALFAMPRIDINE
     Indication: PRODUCT USED FOR UNKNOWN INDICATION
     Dosage: 10 MG, Q 12 HRS
     Route: 048
     Dates: start: 2012

REACTIONS (6)
  - Skin infection [Unknown]
  - Ear pain [Unknown]
  - Surgery [Unknown]
  - Post procedural haematoma [Unknown]
  - Fungal infection [Unknown]
  - Herpes zoster infection neurological [Unknown]

NARRATIVE: CASE EVENT DATE: 201703
